FAERS Safety Report 5826779-X (Version None)
Quarter: 2008Q3

REPORT INFORMATION
  Report Type: 
  Country: None (occurrence: None)
  Receive Date: 20080728
  Receipt Date: 20080728
  Transmission Date: 20090109
  Serious: Yes (Hospitalization)
  Sender: FDA-Public Use
  Company Number: None

PATIENT
  Age: 50 Year
  Sex: Female
  Weight: 97.977 kg

DRUGS (6)
  1. IXEMPRA KIT [Suspect]
     Indication: BREAST CANCER METASTATIC
     Dosage: 88MG Q21D IV
     Route: 042
     Dates: start: 20080610, end: 20080610
  2. IXEMPRA KIT [Suspect]
     Indication: BREAST CANCER METASTATIC
     Dosage: 88MG Q21D IV
     Route: 042
     Dates: start: 20080701, end: 20080701
  3. CIMETIDINE [Concomitant]
  4. DIPHENHYDRAMINE HCL [Concomitant]
  5. ALOXI [Concomitant]
  6. NEULASTA [Concomitant]

REACTIONS (1)
  - FEBRILE NEUTROPENIA [None]
